FAERS Safety Report 23925037 (Version 1)
Quarter: 2024Q2

REPORT INFORMATION
  Report Type: Spontaneous
  Country: US (occurrence: None)
  Receive Date: 20240530
  Receipt Date: 20240530
  Transmission Date: 20240716
  Serious: Yes (Death)
  Sender: FDA-Public Use
  Company Number: None

PATIENT
  Age: 61 Year
  Sex: Female

DRUGS (8)
  1. PROMACTA [Suspect]
     Active Substance: ELTROMBOPAG OLAMINE
     Indication: Platelet count decreased
     Dosage: FREQUENCY : DAILY;?
     Route: 048
     Dates: start: 20240425, end: 20240528
  2. ATORVASTATIN [Concomitant]
  3. WIXELA INHUB DISKUS [Concomitant]
  4. BUPROPION [Concomitant]
     Active Substance: BUPROPION
  5. METOCLOPRAMIDE [Concomitant]
     Active Substance: METOCLOPRAMIDE
  6. DICYCLOMINE [Concomitant]
     Active Substance: DICYCLOMINE HYDROCHLORIDE
  7. CEPHALEXIN [Concomitant]
     Active Substance: CEPHALEXIN
  8. OLANZAPINE [Concomitant]
     Active Substance: OLANZAPINE

REACTIONS (1)
  - Death [None]

NARRATIVE: CASE EVENT DATE: 20240528
